FAERS Safety Report 19534431 (Version 1)
Quarter: 2021Q3

REPORT INFORMATION
  Report Type: Spontaneous
  Country: IT (occurrence: IT)
  Receive Date: 20210713
  Receipt Date: 20210713
  Transmission Date: 20211014
  Serious: Yes (Hospitalization)
  Sender: FDA-Public Use
  Company Number: IT-VALIDUS PHARMACEUTICALS LLC-VDP-2021-000004

PATIENT
  Age: 73 Year
  Sex: Female

DRUGS (4)
  1. ETORICOXIB. [Suspect]
     Active Substance: ETORICOXIB
     Indication: DIURETIC THERAPY
     Dosage: 1 DOSAGE FORM
     Route: 048
  2. OLPRESS [Concomitant]
     Active Substance: OLMESARTAN MEDOXOMIL
     Indication: PRODUCT USED FOR UNKNOWN INDICATION
  3. LOBIVON [Concomitant]
     Active Substance: NEBIVOLOL HYDROCHLORIDE
     Indication: PRODUCT USED FOR UNKNOWN INDICATION
  4. LASIX [Suspect]
     Active Substance: FUROSEMIDE
     Indication: INFLAMMATION
     Dosage: 1 DOSAGE FORM
     Route: 048

REACTIONS (2)
  - Hypertension [Recovered/Resolved]
  - Hyponatraemia [Recovered/Resolved]

NARRATIVE: CASE EVENT DATE: 20210312
